FAERS Safety Report 13054391 (Version 1)
Quarter: 2016Q4

REPORT INFORMATION
  Report Type: Report from Study
  Country: None (occurrence: DE)
  Receive Date: 20161222
  Receipt Date: 20161222
  Transmission Date: 20170207
  Serious: Yes (Hospitalization, Other)
  Sender: FDA-Public Use
  Company Number: DE-ABBVIE-16K-062-1812790-00

PATIENT
  Age: 63 Year
  Sex: Female

DRUGS (3)
  1. HUMIRA [Suspect]
     Active Substance: ADALIMUMAB
     Route: 058
     Dates: start: 201610
  2. DICLAC [Concomitant]
     Active Substance: DICLOFENAC
     Indication: PRODUCT USED FOR UNKNOWN INDICATION
  3. HUMIRA [Suspect]
     Active Substance: ADALIMUMAB
     Indication: ANKYLOSING SPONDYLITIS
     Route: 058
     Dates: start: 20121020, end: 201609

REACTIONS (6)
  - Purulence [Recovered/Resolved]
  - Road traffic accident [Recovered/Resolved]
  - Hyperthermia [Recovered/Resolved]
  - Skin abrasion [Recovered/Resolved]
  - Erythema [Recovered/Resolved]
  - Inflammation of wound [Recovered/Resolved]

NARRATIVE: CASE EVENT DATE: 201609
